FAERS Safety Report 6684284-5 (Version None)
Quarter: 2010Q2

REPORT INFORMATION
  Report Type: 
  Country: None (occurrence: None)
  Receive Date: 20100416
  Receipt Date: 20100409
  Transmission Date: 20101027
  Serious: Yes (Other)
  Sender: FDA-Public Use
  Company Number: SE-RB-006614-10

PATIENT
  Age: 32 Year
  Sex: Male

DRUGS (2)
  1. SUBOXONE [Suspect]
     Indication: DRUG ABUSE
     Route: 065
     Dates: start: 20090901
  2. SUBOXONE [Suspect]
     Route: 065
     Dates: start: 20090101

REACTIONS (6)
  - CONSTIPATION [None]
  - HYPERHIDROSIS [None]
  - MIOSIS [None]
  - POOR QUALITY SLEEP [None]
  - SKIN EXFOLIATION [None]
  - URTICARIA [None]
